FAERS Safety Report 11323081 (Version 1)
Quarter: 2015Q3

REPORT INFORMATION
  Report Type: Report from Study
  Country: AU (occurrence: AU)
  Receive Date: 20150730
  Receipt Date: 20150730
  Transmission Date: 20151125
  Serious: Yes (Hospitalization)
  Sender: FDA-Public Use
  Company Number: AU-ROCHE-1613815

PATIENT
  Age: 71 Year
  Sex: Male

DRUGS (3)
  1. RANIBIZUMAB [Suspect]
     Active Substance: RANIBIZUMAB
     Indication: NEOVASCULAR AGE-RELATED MACULAR DEGENERATION
     Dosage: MOST RECENT DOSE 04/MAY/2015
     Route: 050
     Dates: start: 20141127
  2. LESCOL [Concomitant]
     Active Substance: FLUVASTATIN SODIUM
     Route: 065
     Dates: start: 2008
  3. EZETROL [Concomitant]
     Active Substance: EZETIMIBE
     Route: 065
     Dates: start: 2008

REACTIONS (1)
  - Transient ischaemic attack [Recovered/Resolved]

NARRATIVE: CASE EVENT DATE: 201505
